FAERS Safety Report 16005384 (Version 5)
Quarter: 2019Q2

REPORT INFORMATION
  Report Type: Spontaneous
  Country: US (occurrence: US)
  Receive Date: 20190226
  Receipt Date: 20190611
  Transmission Date: 20190711
  Serious: No
  Sender: FDA-Public Use
  Company Number: US-PFIZER INC-2018013146

PATIENT
  Age: 65 Year
  Sex: Female
  Weight: 77 kg

DRUGS (13)
  1. TAXOTERE [Suspect]
     Active Substance: DOCETAXEL
     Dosage: UNK
     Dates: start: 20150709, end: 20150911
  2. NEOSAR [Concomitant]
     Active Substance: CYCLOPHOSPHAMIDE
     Indication: CHEMOTHERAPY
     Dosage: UNK
  3. VITAMIN E [Concomitant]
     Active Substance: .ALPHA.-TOCOPHEROL
     Dosage: UNK
  4. MOTRIN [Concomitant]
     Active Substance: IBUPROFEN
     Dosage: UNK
     Dates: start: 20110101
  5. DOCETAXEL. [Suspect]
     Active Substance: DOCETAXEL
     Indication: BREAST CANCER METASTATIC
     Dosage: 144 MG/M2, CYCLIC (EVERY THREE WEEKS, 4 CYCLES)
     Dates: start: 20150709, end: 20150911
  6. ECOTRIN [Concomitant]
     Active Substance: ASPIRIN
     Dosage: UNK
     Dates: start: 20110101
  7. ZOFRAN [Concomitant]
     Active Substance: ONDANSETRON HYDROCHLORIDE
     Dosage: UNK
     Dates: start: 20110101
  8. ENALAPRIL [Concomitant]
     Active Substance: ENALAPRIL
     Dosage: UNK
     Dates: start: 20120615
  9. MULTIVITAMIN 6 [Concomitant]
     Dosage: UNK
     Dates: start: 20110101
  10. ASPIRIN (E.C.) [Concomitant]
     Active Substance: ASPIRIN
     Dosage: UNK
     Dates: start: 20110101
  11. ATIVAN [Concomitant]
     Active Substance: LORAZEPAM
     Dosage: UNK
     Dates: start: 20110101
  12. COMPAZINE [PROCHLORPERAZINE EDISYLATE] [Concomitant]
     Active Substance: PROCHLORPERAZINE EDISYLATE
     Dosage: UNK
     Dates: start: 20110101
  13. AMLODIPINE [Concomitant]
     Active Substance: AMLODIPINE BESYLATE
     Dosage: UNK
     Dates: start: 20120615

REACTIONS (5)
  - Hair colour changes [Not Recovered/Not Resolved]
  - Hair disorder [Not Recovered/Not Resolved]
  - Madarosis [Not Recovered/Not Resolved]
  - Alopecia [Not Recovered/Not Resolved]
  - Hair texture abnormal [Not Recovered/Not Resolved]

NARRATIVE: CASE EVENT DATE: 20151030
